FAERS Safety Report 5003656-8 (Version None)
Quarter: 2006Q2

REPORT INFORMATION
  Report Type: 
  Country: None (occurrence: None)
  Receive Date: 20060516
  Receipt Date: 20050414
  Transmission Date: 20061013
  Serious: Yes (Hospitalization, Disabling)
  Sender: FDA-Public Use
  Company Number: US-MERCK-0504USA03074

PATIENT
  Age: 58 Year
  Sex: Male
  Weight: 109 kg

DRUGS (9)
  1. VIOXX [Suspect]
     Indication: RHEUMATOID ARTHRITIS
     Route: 048
     Dates: start: 20010101, end: 20040101
  2. PAXIL [Concomitant]
     Route: 065
  3. HALCION [Concomitant]
     Route: 065
  4. ZOCOR [Concomitant]
     Route: 065
  5. NEURONTIN [Concomitant]
     Route: 065
  6. ALLOPURINOL [Concomitant]
     Route: 065
  7. HYDROCHLOROTHIAZIDE [Concomitant]
     Route: 065
  8. NEXIUM [Concomitant]
     Route: 065
  9. CARTIA XT [Concomitant]
     Route: 065

REACTIONS (9)
  - ARRHYTHMIA SUPRAVENTRICULAR [None]
  - BARRETT'S OESOPHAGUS [None]
  - FATIGUE [None]
  - HERNIA [None]
  - INJURY [None]
  - RENAL CELL CARCINOMA STAGE UNSPECIFIED [None]
  - RENAL DISORDER [None]
  - RENAL INJURY [None]
  - ROAD TRAFFIC ACCIDENT [None]
